FAERS Safety Report 15430014 (Version 2)
Quarter: 2018Q4

REPORT INFORMATION
  Report Type: Spontaneous
  Country: US (occurrence: US)
  Receive Date: 20180926
  Receipt Date: 20181017
  Transmission Date: 20190204
  Serious: No
  Sender: FDA-Public Use
  Company Number: US-PFIZER INC-2018384679

PATIENT
  Age: 90 Year
  Sex: Female
  Weight: 58.97 kg

DRUGS (2)
  1. ADVIL [Suspect]
     Active Substance: IBUPROFEN
     Indication: PAIN
     Dosage: 200 MG, UNK
     Dates: start: 20180910
  2. ADVIL [Suspect]
     Active Substance: IBUPROFEN
     Indication: TOOTH EXTRACTION

REACTIONS (4)
  - Oropharyngeal pain [Recovering/Resolving]
  - Product use complaint [Recovering/Resolving]
  - Throat irritation [Recovering/Resolving]
  - Foreign body in respiratory tract [Recovering/Resolving]

NARRATIVE: CASE EVENT DATE: 20180910
